FAERS Safety Report 10214085 (Version 1)
Quarter: 2014Q2

REPORT INFORMATION
  Report Type: Spontaneous
  Country: FR (occurrence: FR)
  Receive Date: 20140603
  Receipt Date: 20140603
  Transmission Date: 20141212
  Serious: Yes (Hospitalization)
  Sender: FDA-Public Use
  Company Number: FR-JNJFOC-20140518503

PATIENT
  Age: 34 Year
  Sex: Female

DRUGS (13)
  1. XARELTO [Suspect]
     Indication: EMBOLISM VENOUS
     Route: 048
     Dates: start: 20140222
  2. XARELTO [Suspect]
     Indication: DEEP VEIN THROMBOSIS
     Route: 048
     Dates: start: 20140222
  3. INNOHEP [Suspect]
     Indication: DEEP VEIN THROMBOSIS
     Route: 058
     Dates: start: 20140221, end: 20140221
  4. DOXYCYCLINE HYCLATE [Concomitant]
     Route: 065
  5. LEVONORGESTREL W/ETHINYLESTRADIOL [Concomitant]
     Route: 065
  6. NOCTAMIDE [Concomitant]
     Route: 065
  7. ALPRAZOLAM [Concomitant]
     Route: 065
  8. LANSOYL [Concomitant]
     Route: 065
  9. OLANZAPINE [Concomitant]
     Route: 065
  10. LOXAPAC [Concomitant]
     Route: 065
  11. DITROPAN [Concomitant]
     Route: 065
  12. LEPTICUR [Concomitant]
     Route: 065
  13. THERALENE [Concomitant]
     Route: 065

REACTIONS (2)
  - Pulmonary embolism [Recovered/Resolved]
  - Drug ineffective [Recovered/Resolved]
